FAERS Safety Report 11279074 (Version 1)
Quarter: 2015Q3

REPORT INFORMATION
  Report Type: Report from Study
  Country: JP (occurrence: JP)
  Receive Date: 20150717
  Receipt Date: 20150717
  Transmission Date: 20151125
  Serious: Yes (Life-Threatening, Hospitalization, Other)
  Sender: FDA-Public Use
  Company Number: JP-ASTELLAS-2015JP014957

PATIENT
  Age: 14 Year
  Sex: Female
  Weight: 48 kg

DRUGS (137)
  1. TEICOPLANIN [Suspect]
     Active Substance: TEICOPLANIN
     Indication: SEPSIS
     Dosage: UNK UNK, UNKNOWN FREQ.
     Route: 016
     Dates: start: 20130717, end: 20130719
  2. FENTANYL. [Suspect]
     Active Substance: FENTANYL
     Indication: ACUTE LYMPHOCYTIC LEUKAEMIA
     Dosage: UNK UNK, UNKNOWN FREQ.
     Route: 065
     Dates: start: 20130730, end: 20130823
  3. ANTHROBIN P [Suspect]
     Active Substance: ANTITHROMBIN III HUMAN
     Route: 065
     Dates: start: 20130719, end: 20130721
  4. BENAMBAX [Suspect]
     Active Substance: PENTAMIDINE
     Indication: PROPHYLAXIS
     Route: 065
     Dates: start: 20130814, end: 20130814
  5. HUMULIN N [Suspect]
     Active Substance: INSULIN HUMAN
     Indication: HYPERGLYCAEMIA
     Dosage: UNK UNK, UNKNOWN FREQ.
     Route: 065
     Dates: start: 20130730, end: 20130913
  6. DENOSINE                           /00784201/ [Suspect]
     Active Substance: GANCICLOVIR
     Route: 065
     Dates: start: 20130826, end: 20130904
  7. AMLODIPINE BESILATE [Suspect]
     Active Substance: AMLODIPINE BESYLATE
     Route: 048
     Dates: start: 20130806, end: 20130810
  8. ALDACTONE A [Suspect]
     Active Substance: SPIRONOLACTONE
     Route: 048
     Dates: start: 20130728, end: 20130909
  9. VENILON [Suspect]
     Active Substance: HUMAN IMMUNOGLOBULIN G
     Indication: PROPHYLAXIS
     Route: 065
     Dates: start: 20130718, end: 20130718
  10. VENILON [Suspect]
     Active Substance: HUMAN IMMUNOGLOBULIN G
     Route: 065
     Dates: start: 20130725, end: 20130725
  11. VENILON [Suspect]
     Active Substance: HUMAN IMMUNOGLOBULIN G
     Route: 065
     Dates: start: 20130829, end: 20130829
  12. BENECID [Suspect]
     Active Substance: PROBENECID
     Indication: RENAL IMPAIRMENT
     Route: 048
     Dates: start: 20130820, end: 20130824
  13. TRYPTANOL                          /00002202/ [Suspect]
     Active Substance: AMITRIPTYLINE
     Route: 048
     Dates: start: 20130726, end: 20130729
  14. CALONAL [Suspect]
     Active Substance: ACETAMINOPHEN
     Indication: ACUTE LYMPHOCYTIC LEUKAEMIA
     Dosage: UNK UNK, UNKNOWN FREQ.
     Route: 048
     Dates: start: 20130808, end: 20130808
  15. WYPAX [Suspect]
     Active Substance: LORAZEPAM
     Indication: PRODUCT USED FOR UNKNOWN INDICATION
     Dosage: 0.5 MG, ONCE DAILY
     Route: 048
     Dates: start: 20130830
  16. LASIX [Suspect]
     Active Substance: FUROSEMIDE
     Dosage: UNK UNK, UNKNOWN FREQ.
     Route: 065
     Dates: start: 20130826, end: 20130910
  17. CHLOR-TRIMETON [Suspect]
     Active Substance: CHLORPHENIRAMINE MALEATE
     Dosage: UNK UNK, UNKNOWN FREQ.
     Route: 065
     Dates: start: 20130729, end: 20130729
  18. RECOMODULIN [Suspect]
     Active Substance: THROMBOMODULIN ALFA
     Route: 065
     Dates: start: 20130730, end: 20130804
  19. DORMICUM [Suspect]
     Active Substance: MIDAZOLAM\MIDAZOLAM HYDROCHLORIDE
     Dosage: UNK UNK, UNKNOWN FREQ.
     Route: 065
     Dates: start: 20130820, end: 20130823
  20. NEUTROGIN [Suspect]
     Active Substance: LENOGRASTIM
     Indication: PROPHYLAXIS
     Route: 065
     Dates: start: 20130715, end: 20130803
  21. METHOTREXATE [Suspect]
     Active Substance: METHOTREXATE
     Indication: PROPHYLAXIS
     Route: 065
     Dates: start: 20130716, end: 20130716
  22. ALBUMIN HUMAN [Suspect]
     Active Substance: ALBUMIN (HUMAN)
     Indication: HYPOALBUMINAEMIA
     Dosage: UNK UNK, UNKNOWN FREQ.
     Route: 065
     Dates: start: 20130717, end: 20130821
  23. ADONA                              /00056903/ [Suspect]
     Active Substance: CARBAZOCHROME SODIUM SULFONATE
     Indication: ORAL DISORDER
     Route: 065
     Dates: start: 20130720, end: 20130729
  24. SOLU-MEDROL [Suspect]
     Active Substance: METHYLPREDNISOLONE SODIUM SUCCINATE
     Indication: CAPILLARY LEAK SYNDROME
     Route: 065
     Dates: start: 20130729, end: 20130729
  25. ATARAX-P                           /00058402/ [Suspect]
     Active Substance: HYDROXYZINE HYDROCHLORIDE
     Dosage: UNK UNK, UNKNOWN FREQ.
     Route: 065
     Dates: start: 20130826, end: 20130830
  26. DENOSINE                           /00784201/ [Suspect]
     Active Substance: GANCICLOVIR
     Route: 065
     Dates: start: 20130821, end: 20130824
  27. HANP [Suspect]
     Active Substance: CARPERITIDE
     Dosage: UNK, UNKNOWN FREQ.
     Route: 065
     Dates: start: 20130818, end: 20130916
  28. VFEND [Suspect]
     Active Substance: VORICONAZOLE
     Route: 065
     Dates: start: 20130830, end: 20130928
  29. ESLAX [Suspect]
     Active Substance: ROCURONIUM BROMIDE
     Indication: ACUTE LYMPHOCYTIC LEUKAEMIA
     Route: 065
     Dates: start: 20130801, end: 20130801
  30. DROLEPTAN [Suspect]
     Active Substance: DROPERIDOL
     Indication: ACUTE LYMPHOCYTIC LEUKAEMIA
     Route: 065
     Dates: start: 20130808, end: 20130808
  31. PREDONINE [Suspect]
     Active Substance: PREDNISOLONE\PREDNISOLONE ACETATE\PREDNISOLONE SODIUM SUCCINATE
     Route: 065
     Dates: start: 20130913, end: 20130918
  32. PREDONINE [Suspect]
     Active Substance: PREDNISOLONE\PREDNISOLONE ACETATE\PREDNISOLONE SODIUM SUCCINATE
     Route: 065
     Dates: start: 20130919, end: 20130919
  33. PREDONINE [Suspect]
     Active Substance: PREDNISOLONE\PREDNISOLONE ACETATE\PREDNISOLONE SODIUM SUCCINATE
     Route: 065
     Dates: start: 20130930, end: 20130930
  34. SERENACE [Suspect]
     Active Substance: HALOPERIDOL
     Indication: ACUTE LYMPHOCYTIC LEUKAEMIA
     Route: 065
     Dates: start: 20130808, end: 20130808
  35. URSO [Suspect]
     Active Substance: URSODIOL
     Indication: PROPHYLAXIS
     Route: 048
     Dates: start: 20130718, end: 20130926
  36. AMLODIPINE BESILATE [Suspect]
     Active Substance: AMLODIPINE BESYLATE
     Route: 048
     Dates: start: 20130802, end: 20130803
  37. MUCODYNE [Suspect]
     Active Substance: CARBOCYSTEINE
     Indication: PNEUMONIA
     Route: 048
     Dates: start: 20130714, end: 20130729
  38. VFEND [Suspect]
     Active Substance: VORICONAZOLE
     Indication: PRODUCT USED FOR UNKNOWN INDICATION
     Dosage: UNK, UNKNOWN FREQ.
     Route: 048
  39. POLYMIX                            /00271401/ [Suspect]
     Active Substance: HYDROCORTISONE\NEOMYCIN SULFATE\POLYMYXIN B SULFATE
     Indication: PROPHYLAXIS
     Dosage: UNK, THRICE DAILY
     Route: 048
     Dates: start: 20130718, end: 20130810
  40. RIKKUNSHITO                        /08041001/ [Suspect]
     Active Substance: HERBALS
     Indication: RENAL IMPAIRMENT
     Route: 048
     Dates: start: 20130803, end: 20130808
  41. NEUTROGIN [Suspect]
     Active Substance: LENOGRASTIM
     Route: 065
     Dates: start: 20130806, end: 20130808
  42. LASIX [Suspect]
     Active Substance: FUROSEMIDE
     Indication: RENAL IMPAIRMENT
     Route: 048
     Dates: start: 20130821, end: 20130825
  43. ALBUMIN HUMAN [Suspect]
     Active Substance: ALBUMIN (HUMAN)
     Indication: GENERALISED OEDEMA
  44. KAYTWO N [Suspect]
     Active Substance: MENATETRENONE
     Route: 065
     Dates: start: 20130728, end: 20130728
  45. ATARAX-P                           /00058402/ [Suspect]
     Active Substance: HYDROXYZINE HYDROCHLORIDE
     Dosage: UNK UNK, UNKNOWN FREQ.
     Route: 065
     Dates: start: 20130818, end: 20130818
  46. BENAMBAX [Suspect]
     Active Substance: PENTAMIDINE
     Route: 065
     Dates: start: 20130828, end: 20130828
  47. PANTOL                             /00223901/ [Suspect]
     Active Substance: PANTHENOL
     Indication: ILEUS PARALYTIC
     Route: 065
     Dates: start: 20130802, end: 20130906
  48. PREDONINE [Suspect]
     Active Substance: PREDNISOLONE\PREDNISOLONE ACETATE\PREDNISOLONE SODIUM SUCCINATE
     Indication: GRAFT VERSUS HOST DISEASE
     Route: 065
     Dates: start: 20130820, end: 20130829
  49. VENILON [Suspect]
     Active Substance: HUMAN IMMUNOGLOBULIN G
     Route: 065
     Dates: start: 20130815, end: 20130815
  50. BENECID [Suspect]
     Active Substance: PROBENECID
     Route: 048
     Dates: start: 20130828, end: 20130828
  51. ONDANSETRON [Suspect]
     Active Substance: ONDANSETRON
     Dosage: UNK, UNKNOWN FREQ.
     Route: 065
     Dates: start: 20130720, end: 20130721
  52. PREDOHAN [Suspect]
     Active Substance: PREDNISOLONE
     Indication: PRODUCT USED FOR UNKNOWN INDICATION
     Dosage: UNK, UNKNOWN FREQ.
     Route: 048
  53. LASIX [Suspect]
     Active Substance: FUROSEMIDE
     Dosage: UNK UNK, UNKNOWN FREQ.
     Route: 065
     Dates: start: 20130806, end: 20130806
  54. CHLOR-TRIMETON [Suspect]
     Active Substance: CHLORPHENIRAMINE MALEATE
     Dosage: UNK UNK, UNKNOWN FREQ.
     Route: 065
     Dates: start: 20130814, end: 20130814
  55. CHLOR-TRIMETON [Suspect]
     Active Substance: CHLORPHENIRAMINE MALEATE
     Dosage: UNK UNK, UNKNOWN FREQ.
     Route: 065
     Dates: start: 20130825, end: 20130825
  56. ROPION [Suspect]
     Active Substance: FLURBIPROFEN AXETIL
     Indication: ACUTE LYMPHOCYTIC LEUKAEMIA
     Dosage: UNK UNK, UNKNOWN FREQ.
     Route: 065
     Dates: start: 20130716, end: 20130717
  57. FUNGUARD [Suspect]
     Active Substance: MICAFUNGIN SODIUM
     Route: 065
     Dates: start: 20130825, end: 20130828
  58. DORMICUM [Suspect]
     Active Substance: MIDAZOLAM\MIDAZOLAM HYDROCHLORIDE
     Indication: ACUTE LYMPHOCYTIC LEUKAEMIA
     Dosage: UNK UNK, UNKNOWN FREQ.
     Route: 065
     Dates: start: 20130730, end: 20130807
  59. DALTEPARIN SODIUM [Suspect]
     Active Substance: DALTEPARIN SODIUM
     Indication: PROPHYLAXIS
     Route: 016
     Dates: start: 20130714, end: 20130729
  60. ALBUMIN HUMAN [Suspect]
     Active Substance: ALBUMIN (HUMAN)
     Indication: CAPILLARY LEAK SYNDROME
     Dosage: UNK UNK, UNKNOWN FREQ.
     Route: 065
     Dates: start: 20130714, end: 20130715
  61. ANTHROBIN P [Suspect]
     Active Substance: ANTITHROMBIN III HUMAN
     Route: 065
     Dates: start: 20130728, end: 20130729
  62. ANTHROBIN P [Suspect]
     Active Substance: ANTITHROMBIN III HUMAN
     Route: 065
     Dates: start: 20130805, end: 20130805
  63. ATARAX-P                           /00058402/ [Suspect]
     Active Substance: HYDROXYZINE HYDROCHLORIDE
     Indication: ACUTE LYMPHOCYTIC LEUKAEMIA
     Dosage: UNK UNK, UNKNOWN FREQ.
     Route: 065
     Dates: start: 20130808, end: 20130808
  64. DENOSINE                           /00784201/ [Suspect]
     Active Substance: GANCICLOVIR
     Indication: CYTOMEGALOVIRUS VIRAEMIA
     Route: 065
     Dates: start: 20130810, end: 20130819
  65. DENOSINE                           /00784201/ [Suspect]
     Active Substance: GANCICLOVIR
     Route: 065
     Dates: start: 20130820, end: 20130820
  66. HANP [Suspect]
     Active Substance: CARPERITIDE
     Indication: HYPERTENSION
     Dosage: UNK, UNKNOWN FREQ.
     Route: 065
     Dates: start: 20130730, end: 20130802
  67. PREDONINE [Suspect]
     Active Substance: PREDNISOLONE\PREDNISOLONE ACETATE\PREDNISOLONE SODIUM SUCCINATE
     Route: 065
     Dates: start: 20130830, end: 20130904
  68. PREDONINE [Suspect]
     Active Substance: PREDNISOLONE\PREDNISOLONE ACETATE\PREDNISOLONE SODIUM SUCCINATE
     Route: 065
     Dates: start: 20130905, end: 20130912
  69. PREDONINE [Suspect]
     Active Substance: PREDNISOLONE\PREDNISOLONE ACETATE\PREDNISOLONE SODIUM SUCCINATE
     Route: 065
     Dates: start: 20130920, end: 20130929
  70. ALDACTONE A [Suspect]
     Active Substance: SPIRONOLACTONE
     Indication: RENAL IMPAIRMENT
     Route: 048
     Dates: start: 20130820, end: 20130827
  71. SAMSCA [Suspect]
     Active Substance: TOLVAPTAN
     Indication: RENAL IMPAIRMENT
     Route: 048
     Dates: start: 20130820, end: 20130905
  72. ONDANSETRON [Suspect]
     Active Substance: ONDANSETRON
     Indication: PROPHYLAXIS
     Dosage: UNK, UNKNOWN FREQ.
     Route: 016
     Dates: start: 20130716, end: 20130716
  73. LASIX [Suspect]
     Active Substance: FUROSEMIDE
     Indication: RENAL IMPAIRMENT
     Dosage: UNK UNK, UNKNOWN FREQ.
     Route: 065
     Dates: start: 20130714, end: 20130729
  74. ROPION [Suspect]
     Active Substance: FLURBIPROFEN AXETIL
     Dosage: UNK UNK, UNKNOWN FREQ.
     Route: 065
     Dates: start: 20130726, end: 20130729
  75. TACROLIMUS. [Suspect]
     Active Substance: TACROLIMUS
     Indication: GRAFT VERSUS HOST DISEASE
  76. PRIMPERAN [Suspect]
     Active Substance: METOCLOPRAMIDE HYDROCHLORIDE
     Indication: ILEUS PARALYTIC
     Route: 065
     Dates: start: 20130808, end: 20130809
  77. TEICOPLANIN [Suspect]
     Active Substance: TEICOPLANIN
     Dosage: UNK UNK, UNKNOWN FREQ.
     Route: 065
     Dates: start: 20130722, end: 20130723
  78. NEUTROGIN [Suspect]
     Active Substance: LENOGRASTIM
     Route: 065
     Dates: start: 20130804, end: 20130804
  79. ANTHROBIN P [Suspect]
     Active Substance: ANTITHROMBIN III HUMAN
     Route: 065
     Dates: start: 20130726, end: 20130726
  80. PRECEDEX [Suspect]
     Active Substance: DEXMEDETOMIDINE HYDROCHLORIDE
     Indication: ACUTE LYMPHOCYTIC LEUKAEMIA
     Dosage: UNK UNK, UNKNOWN FREQ.
     Route: 065
     Dates: start: 20130731, end: 20130801
  81. PRECEDEX [Suspect]
     Active Substance: DEXMEDETOMIDINE HYDROCHLORIDE
     Dosage: UNK UNK, UNKNOWN FREQ.
     Route: 065
     Dates: start: 20130805, end: 20130808
  82. PREDONINE [Suspect]
     Active Substance: PREDNISOLONE\PREDNISOLONE ACETATE\PREDNISOLONE SODIUM SUCCINATE
     Indication: CAPILLARY LEAK SYNDROME
     Route: 065
     Dates: start: 20130814, end: 20130819
  83. PREDONINE [Suspect]
     Active Substance: PREDNISOLONE\PREDNISOLONE ACETATE\PREDNISOLONE SODIUM SUCCINATE
     Dosage: UNK UNK, UNKNOWN FREQ.
     Route: 065
  84. INTRALIPOS [Suspect]
     Active Substance: SOYBEAN OIL
     Indication: MALNUTRITION
     Route: 065
     Dates: start: 20130820, end: 20130823
  85. VENECTOMIN [Suspect]
     Active Substance: CANRENOATE POTASSIUM
     Indication: RENAL IMPAIRMENT
     Route: 065
     Dates: start: 20130820, end: 20130821
  86. ZOVIRAX [Suspect]
     Active Substance: ACYCLOVIR
     Indication: PROPHYLAXIS
     Route: 048
     Dates: start: 20130718, end: 20130926
  87. AMLODIPINE BESILATE [Suspect]
     Active Substance: AMLODIPINE BESYLATE
     Route: 048
     Dates: start: 20130731, end: 20130801
  88. BENECID [Suspect]
     Active Substance: PROBENECID
     Route: 048
     Dates: start: 20130826, end: 20130826
  89. ENTERONON [Suspect]
     Active Substance: LACTOBACILLUS ACIDOPHILUS
     Indication: THROMBOTIC MICROANGIOPATHY
     Route: 048
     Dates: start: 20130807, end: 20130810
  90. LASIX [Suspect]
     Active Substance: FUROSEMIDE
     Dosage: UNK UNK, UNKNOWN FREQ.
     Route: 065
     Dates: start: 20130817, end: 20130824
  91. OMEPRAL                            /00661201/ [Suspect]
     Active Substance: OMEPRAZOLE
     Indication: GASTROINTESTINAL DISORDER
     Route: 065
     Dates: start: 20130720, end: 20130924
  92. CHLOR-TRIMETON [Suspect]
     Active Substance: CHLORPHENIRAMINE MALEATE
     Dosage: UNK UNK, UNKNOWN FREQ.
     Route: 065
     Dates: start: 20130827, end: 20130827
  93. ROPION [Suspect]
     Active Substance: FLURBIPROFEN AXETIL
     Dosage: UNK UNK, UNKNOWN FREQ.
     Route: 065
     Dates: start: 20130824, end: 20130824
  94. RECOMODULIN [Suspect]
     Active Substance: THROMBOMODULIN ALFA
     Indication: ABNORMAL CLOTTING FACTOR
     Route: 065
     Dates: start: 20130716, end: 20130729
  95. BRIDION [Suspect]
     Active Substance: SUGAMMADEX
     Indication: ACUTE LYMPHOCYTIC LEUKAEMIA
     Dosage: UNK UNK, UNKNOWN FREQ.
     Route: 065
     Dates: start: 20130801, end: 20130801
  96. FUNGUARD [Suspect]
     Active Substance: MICAFUNGIN SODIUM
     Route: 065
     Dates: start: 20130730, end: 20130821
  97. ZOSYN [Suspect]
     Active Substance: PIPERACILLIN SODIUM\TAZOBACTAM SODIUM
     Indication: SEPSIS
     Route: 065
     Dates: start: 20130714, end: 20130715
  98. ANTHROBIN P [Suspect]
     Active Substance: ANTITHROMBIN III HUMAN
     Indication: ABNORMAL CLOTTING FACTOR
     Route: 065
     Dates: start: 20130715, end: 20130715
  99. ANTHROBIN P [Suspect]
     Active Substance: ANTITHROMBIN III HUMAN
     Route: 065
     Dates: start: 20130724, end: 20130724
  100. ANTHROBIN P [Suspect]
     Active Substance: ANTITHROMBIN III HUMAN
     Route: 065
     Dates: start: 20130811, end: 20130812
  101. SOLU-MEDROL [Suspect]
     Active Substance: METHYLPREDNISOLONE SODIUM SUCCINATE
     Route: 065
     Dates: start: 20130801, end: 20130813
  102. VFEND [Suspect]
     Active Substance: VORICONAZOLE
     Indication: PROPHYLAXIS
     Route: 065
     Dates: start: 20130828, end: 20130829
  103. VENILON [Suspect]
     Active Substance: HUMAN IMMUNOGLOBULIN G
     Route: 065
     Dates: start: 20130720, end: 20130721
  104. VENILON [Suspect]
     Active Substance: HUMAN IMMUNOGLOBULIN G
     Route: 065
     Dates: start: 20130802, end: 20130802
  105. BENECID [Suspect]
     Active Substance: PROBENECID
     Route: 048
     Dates: start: 20130830, end: 20130830
  106. LANSOPRAZOLE. [Suspect]
     Active Substance: LANSOPRAZOLE
     Indication: GASTROINTESTINAL DISORDER
     Route: 048
     Dates: start: 20130714, end: 20130729
  107. TRYPTANOL                          /00002202/ [Suspect]
     Active Substance: AMITRIPTYLINE
     Indication: NEUROPATHY PERIPHERAL
     Route: 048
     Dates: start: 20130714, end: 20130725
  108. LASIX [Suspect]
     Active Substance: FUROSEMIDE
     Indication: GENERALISED OEDEMA
     Dosage: UNK UNK, UNKNOWN FREQ.
     Route: 065
     Dates: start: 20130802, end: 20130803
  109. ROPION [Suspect]
     Active Substance: FLURBIPROFEN AXETIL
     Dosage: UNK UNK, UNKNOWN FREQ.
     Route: 065
     Dates: start: 20130723, end: 20130724
  110. ROPION [Suspect]
     Active Substance: FLURBIPROFEN AXETIL
     Dosage: UNK UNK, UNKNOWN FREQ.
     Route: 065
     Dates: start: 20130808, end: 20130809
  111. ROPION [Suspect]
     Active Substance: FLURBIPROFEN AXETIL
     Dosage: UNK UNK, UNKNOWN FREQ.
     Route: 065
     Dates: start: 20130818, end: 20130818
  112. FUNGUARD [Suspect]
     Active Substance: MICAFUNGIN SODIUM
     Indication: SEPSIS
     Route: 065
     Dates: start: 20130714, end: 20130729
  113. NICARDIPINE [Suspect]
     Active Substance: NICARDIPINE
     Indication: HYPERTENSION
     Dosage: UNK, UNKNOWN FREQ.
     Route: 016
     Dates: start: 20130714, end: 20130719
  114. NICARDIPINE [Suspect]
     Active Substance: NICARDIPINE
     Dosage: UNK UNK, UNKNOWN FREQ.
     Route: 065
     Dates: start: 20130803, end: 20130913
  115. FINIBAX [Suspect]
     Active Substance: DORIPENEM MONOHYDRATE
     Indication: SEPSIS
     Route: 041
     Dates: start: 20130728, end: 20130830
  116. CALCICOL [Suspect]
     Active Substance: CALCIUM GLUCONATE
     Indication: HYPOCALCAEMIA
     Dosage: UNK UNK, UNKNOWN FREQ.
     Route: 065
     Dates: start: 20130714, end: 20130716
  117. OLIVES [Suspect]
     Active Substance: LIDOCAINE HYDROCHLORIDE
     Route: 065
     Dates: start: 20130731, end: 20130819
  118. MEROPEN                            /01250501/ [Suspect]
     Active Substance: MEROPENEM
     Indication: SEPSIS
     Route: 016
     Dates: start: 20130715, end: 20130728
  119. SOLU-MEDROL [Suspect]
     Active Substance: METHYLPREDNISOLONE SODIUM SUCCINATE
     Indication: GRAFT VERSUS HOST DISEASE
     Route: 065
     Dates: start: 20130731, end: 20130731
  120. ATARAX-P                           /00058402/ [Suspect]
     Active Substance: HYDROXYZINE HYDROCHLORIDE
     Dosage: UNK UNK, UNKNOWN FREQ.
     Route: 065
     Dates: start: 20130813, end: 20130813
  121. OXYCODONE HYDROCHLORIDE. [Suspect]
     Active Substance: OXYCODONE HYDROCHLORIDE
     Indication: NEUROPATHY PERIPHERAL
     Dosage: UNK UNK, UNKNOWN FREQ.
     Route: 065
     Dates: start: 20130714, end: 20130729
  122. PRECEDEX [Suspect]
     Active Substance: DEXMEDETOMIDINE HYDROCHLORIDE
     Dosage: UNK UNK, UNKNOWN FREQ.
     Route: 065
     Dates: start: 20130823, end: 20130823
  123. AMLODIPINE BESILATE [Suspect]
     Active Substance: AMLODIPINE BESYLATE
     Indication: HYPERTENSION
     Route: 048
     Dates: start: 20130714, end: 20130717
  124. AMLODIPINE BESILATE [Suspect]
     Active Substance: AMLODIPINE BESYLATE
     Route: 048
     Dates: start: 20130804, end: 20130805
  125. ENTERONON [Suspect]
     Active Substance: LACTOBACILLUS ACIDOPHILUS
     Route: 048
     Dates: start: 20130820, end: 20130926
  126. CHLOR-TRIMETON [Suspect]
     Active Substance: CHLORPHENIRAMINE MALEATE
     Indication: PROPHYLAXIS
     Dosage: UNK UNK, UNKNOWN FREQ.
     Route: 065
     Dates: start: 20130722, end: 20130727
  127. CHLOR-TRIMETON [Suspect]
     Active Substance: CHLORPHENIRAMINE MALEATE
     Dosage: UNK UNK, UNKNOWN FREQ.
     Route: 065
     Dates: start: 20130810, end: 20130811
  128. TACROLIMUS. [Suspect]
     Active Substance: TACROLIMUS
     Indication: PROPHYLAXIS
     Dosage: UNK UNK, UNKNOWN FREQ.
     Route: 065
     Dates: start: 20130714, end: 20130925
  129. OLIVES [Suspect]
     Active Substance: LIDOCAINE HYDROCHLORIDE
     Indication: NEUROPATHY PERIPHERAL
     Route: 065
     Dates: start: 20130714, end: 20130729
  130. ANTHROBIN P [Suspect]
     Active Substance: ANTITHROMBIN III HUMAN
     Route: 065
     Dates: start: 20130731, end: 20130803
  131. KAYTWO N [Suspect]
     Active Substance: MENATETRENONE
     Indication: ABNORMAL CLOTTING FACTOR
     Route: 065
     Dates: start: 20130720, end: 20130720
  132. HEPARIN SODIUM. [Suspect]
     Active Substance: HEPARIN SODIUM
     Indication: PROPHYLAXIS
     Route: 065
     Dates: start: 20130730, end: 20130807
  133. DAIKENCHUTO [Suspect]
     Active Substance: HERBALS
     Indication: ILEUS PARALYTIC
     Route: 048
     Dates: start: 20130803, end: 20130808
  134. ALDACTONE A [Suspect]
     Active Substance: SPIRONOLACTONE
     Route: 048
     Dates: start: 20130910, end: 20130930
  135. EVAMYL [Suspect]
     Active Substance: LORMETAZEPAM
     Indication: INSOMNIA
     Dosage: UNK UNK, UNKNOWN FREQ.
     Route: 048
     Dates: start: 20130717, end: 20130718
  136. LYRICA [Suspect]
     Active Substance: PREGABALIN
     Indication: NEUROPATHY PERIPHERAL
     Route: 048
     Dates: start: 20130714, end: 20130729
  137. ROPION [Suspect]
     Active Substance: FLURBIPROFEN AXETIL
     Dosage: UNK UNK, UNKNOWN FREQ.
     Route: 065
     Dates: start: 20130811, end: 20130811

REACTIONS (12)
  - Hyperglycaemia [Not Recovered/Not Resolved]
  - Thrombotic microangiopathy [Not Recovered/Not Resolved]
  - Ileus paralytic [Recovered/Resolved]
  - Diarrhoea [Recovering/Resolving]
  - Graft versus host disease [Recovering/Resolving]
  - Adenovirus infection [Recovering/Resolving]
  - Surgical procedure repeated [None]
  - Pneumothorax [Recovered/Resolved]
  - Cytomegalovirus viraemia [Not Recovered/Not Resolved]
  - Respiratory disorder [Recovering/Resolving]
  - Hepatic function abnormal [Recovered/Resolved]
  - Stem cell transplant [None]

NARRATIVE: CASE EVENT DATE: 20130729
